FAERS Safety Report 17037044 (Version 13)
Quarter: 2024Q3

REPORT INFORMATION
  Report Type: Spontaneous
  Country: US (occurrence: US)
  Receive Date: 20191115
  Receipt Date: 20240912
  Transmission Date: 20241016
  Serious: Yes (Hospitalization, Other)
  Sender: PFIZER
  Company Number: US-PFIZER INC-2019490210

PATIENT
  Age: 69 Year
  Sex: Female
  Weight: 103 kg

DRUGS (12)
  1. XELJANZ XR [Suspect]
     Active Substance: TOFACITINIB CITRATE
     Indication: Rheumatoid arthritis
     Dosage: 11 MG, 1X/DAY
  2. XELJANZ XR [Suspect]
     Active Substance: TOFACITINIB CITRATE
     Dosage: 11 MG, 1X/DAY
     Route: 048
     Dates: start: 2018
  3. XELJANZ XR [Suspect]
     Active Substance: TOFACITINIB CITRATE
     Dosage: 11 MG
  4. XELJANZ [Suspect]
     Active Substance: TOFACITINIB CITRATE
     Indication: Rheumatoid arthritis
     Dosage: 5 MG, 2X/DAY
     Dates: start: 201904
  5. XELJANZ [Suspect]
     Active Substance: TOFACITINIB CITRATE
     Dosage: 10 MG
     Dates: start: 201907, end: 202001
  6. METHOTREXATE SODIUM [Concomitant]
     Active Substance: METHOTREXATE SODIUM
     Indication: Rheumatoid arthritis
     Dosage: UNK, WEEKLY
  7. XARELTO [Concomitant]
     Active Substance: RIVAROXABAN
     Indication: Thrombosis
     Dosage: 15 MG, 2X/DAY
     Dates: start: 20200112
  8. XARELTO [Concomitant]
     Active Substance: RIVAROXABAN
     Dosage: UNK, 2X/DAY
     Route: 048
  9. QSYMIA [Concomitant]
     Active Substance: PHENTERMINE HYDROCHLORIDE\TOPIRAMATE
     Indication: Weight
     Dosage: 7.5 MG, DAILY
  10. CELEBREX [Concomitant]
     Active Substance: CELECOXIB
     Dosage: UNK
     Dates: start: 2014, end: 20200114
  11. CELECOXIB [Concomitant]
     Active Substance: CELECOXIB
     Dosage: 200 MG, 1X/DAY
     Dates: start: 2014, end: 20200114
  12. SYNTHROID [Concomitant]
     Active Substance: LEVOTHYROXINE SODIUM
     Dosage: 137 MG
     Dates: start: 2013

REACTIONS (8)
  - Condition aggravated [Recovered/Resolved]
  - Soft tissue injury [Recovered/Resolved with Sequelae]
  - Memory impairment [Unknown]
  - Hypertension [Unknown]
  - Blood cholesterol increased [Unknown]
  - Muscular weakness [Recovering/Resolving]
  - Gait disturbance [Unknown]
  - Herpes zoster [Unknown]

NARRATIVE: CASE EVENT DATE: 20190301
